FAERS Safety Report 9538788 (Version 2)
Quarter: 2014Q1

REPORT INFORMATION
  Report Type: Spontaneous
  Country: US (occurrence: None)
  Receive Date: 20130517
  Receipt Date: 20140218
  Transmission Date: 20141002
  Serious: No
  Sender: FDA-Public Use
  Company Number: 1000044204

PATIENT
  Age: 68 Year
  Sex: Female

DRUGS (4)
  1. VIIBRYD [Suspect]
     Indication: STRESS
     Dosage: 10 MG (10 MG, 1 IN 1 D), ORAL
     Route: 048
     Dates: start: 201303, end: 2013
  2. BIOIDENTICAL HORMONES (BIOIDENTICAL HORMONES) (BIOIDENTICAL HORMONES) [Concomitant]
  3. SYNTHROID (LEVOTHYROXINE SODIUM) (LEVOTHYROXINE SODIUM) [Concomitant]
  4. CYTOMEL (LIOTHYRONINE SODIUM) (LIOTHYRONINE SODIUM) [Concomitant]

REACTIONS (10)
  - Insomnia [None]
  - Night sweats [None]
  - Palpitations [None]
  - Frequent bowel movements [None]
  - Off label use [None]
  - Sexual dysfunction [None]
  - Upper respiratory tract infection [None]
  - Dizziness [None]
  - Muscle spasms [None]
  - Dry mouth [None]
